FAERS Safety Report 7562069-5 (Version None)
Quarter: 2011Q2

REPORT INFORMATION
  Report Type: 
  Country: None (occurrence: None)
  Receive Date: 20110622
  Receipt Date: 20110401
  Transmission Date: 20111010
  Serious: No
  Sender: FDA-Public Use
  Company Number: PHHY2010DE66853

PATIENT
  Sex: Male
  Weight: 73 kg

DRUGS (3)
  1. TASIGNA [Suspect]
     Indication: CHRONIC MYELOID LEUKAEMIA
     Dosage: 3 DF, PER DAY
     Route: 048
     Dates: start: 20101001
  2. OLMESARTAN MEDOXOMIL AND HYDROCHLOROTHIZIDE [Concomitant]
     Indication: HYPERTENSION
     Dosage: 1 MG/DAY
     Route: 048
     Dates: start: 20101116
  3. ACETYL SALICYLIC ACID COMPOUND TAB [Concomitant]
     Indication: PROPHYLAXIS
     Dosage: 100 MG/DAY
     Route: 048

REACTIONS (12)
  - CARDIOVASCULAR INSUFFICIENCY [None]
  - NIGHT SWEATS [None]
  - MUSCLE SPASMS [None]
  - DIARRHOEA [None]
  - BLOOD CREATININE INCREASED [None]
  - CHILLS [None]
  - PRURITUS [None]
  - HEADACHE [None]
  - ARTHRALGIA [None]
  - OEDEMA PERIPHERAL [None]
  - BLOOD PRESSURE INCREASED [None]
  - DYSPEPSIA [None]
